FAERS Safety Report 10795548 (Version 2)
Quarter: 2015Q1

REPORT INFORMATION
  Report Type: Spontaneous
  Country: US (occurrence: US)
  Receive Date: 20150215
  Receipt Date: 20150215
  Transmission Date: 20150721
  Serious: Yes (Death)
  Sender: FDA-Public Use
  Company Number: US-WATSON-2015-02323

PATIENT
  Age: 19 Year
  Sex: Female

DRUGS (10)
  1. WARFARIN (UNKNOWN) [Suspect]
     Active Substance: WARFARIN
     Indication: COMPLETED SUICIDE
     Dosage: UNK
     Route: 048
  2. NAPROXEN (WATSON LABORATORIES) [Suspect]
     Active Substance: NAPROXEN
     Indication: COMPLETED SUICIDE
     Dosage: UNK
     Route: 048
  3. HYDROCODONE BITARTRATE/ACETAMINOPHEN 10/325 (ACTAVIS LABORATORIES FL) [Suspect]
     Active Substance: ACETAMINOPHEN\HYDROCODONE BITARTRATE
     Indication: COMPLETED SUICIDE
     Dosage: UNK
     Route: 048
  4. ACETAMINOPHEN (UNKNOWN) [Suspect]
     Active Substance: ACETAMINOPHEN
     Indication: COMPLETED SUICIDE
     Dosage: UNK
     Route: 048
  5. ZOLPIDEM TARTRATE (WATSON LABORATORIES) [Suspect]
     Active Substance: ZOLPIDEM TARTRATE
     Indication: COMPLETED SUICIDE
     Dosage: UNK
     Route: 048
  6. NABUMETONE (WATSON LABORATORIES) [Suspect]
     Active Substance: NABUMETONE
     Indication: COMPLETED SUICIDE
     Dosage: UNK
     Route: 048
  7. HYDROXYZINE [Suspect]
     Active Substance: HYDROXYZINE\HYDROXYZINE HYDROCHLORIDE
     Indication: COMPLETED SUICIDE
     Dosage: UNK
     Route: 048
  8. BENZONATATE. [Suspect]
     Active Substance: BENZONATATE
     Indication: COMPLETED SUICIDE
     Dosage: UNK
     Route: 048
  9. QUETIAPINE (AGPTC) [Suspect]
     Active Substance: QUETIAPINE
     Indication: COMPLETED SUICIDE
     Dosage: UNK
     Route: 048
  10. IBUPROFEN (AMALLC) [Suspect]
     Active Substance: IBUPROFEN
     Indication: COMPLETED SUICIDE
     Dosage: UNK
     Route: 048

REACTIONS (3)
  - Completed suicide [Fatal]
  - Cardiac arrest [Fatal]
  - Respiratory arrest [Fatal]
